FAERS Safety Report 15511010 (Version 1)
Quarter: 2018Q4

REPORT INFORMATION
  Report Type: Spontaneous
  Country: US (occurrence: US)
  Receive Date: 20181010
  Receipt Date: 20181010
  Transmission Date: 20190205
  Serious: Yes (Hospitalization)
  Sender: FDA-Public Use
  Company Number: None

PATIENT
  Age: 60 Year

DRUGS (11)
  1. PREDNISONE. [Concomitant]
     Active Substance: PREDNISONE
  2. NOVOLOG [Concomitant]
     Active Substance: INSULIN ASPART
  3. LOSARTAN. [Concomitant]
     Active Substance: LOSARTAN
  4. ATORVASTATIN [Concomitant]
     Active Substance: ATORVASTATIN
  5. ACCU-CHEK AVIVA TEST STRIPS [Concomitant]
  6. PAROXETINE. [Concomitant]
     Active Substance: PAROXETINE
  7. ATENOLOL. [Concomitant]
     Active Substance: ATENOLOL
  8. ALENDRONATE [Concomitant]
     Active Substance: ALENDRONATE SODIUM
  9. MYCOPHENOLATE 250 MG [Suspect]
     Active Substance: MYCOPHENOLIC ACID
     Route: 048
     Dates: start: 20171101
  10. SMZ/TMP DS [Concomitant]
     Active Substance: SULFAMETHOXAZOLE\TRIMETHOPRIM
  11. TACROLIMUS 1 MG [Suspect]
     Active Substance: TACROLIMUS
     Route: 048
     Dates: start: 20171010

REACTIONS (1)
  - Pneumonia [None]

NARRATIVE: CASE EVENT DATE: 2018
